FAERS Safety Report 4456226-4 (Version None)
Quarter: 2004Q3

REPORT INFORMATION
  Report Type: 
  Country: None (occurrence: None)
  Receive Date: 20040920
  Receipt Date: 20040716
  Transmission Date: 20050211
  Serious: No
  Sender: FDA-Public Use
  Company Number: 04GER0146

PATIENT
  Age: 43 Year
  Sex: Female

DRUGS (1)
  1. AGGRASTAT [Suspect]
     Dosage: 6 ML/H INJECTION
     Dates: start: 20040701, end: 20040701

REACTIONS (3)
  - ACCIDENTAL EXPOSURE [None]
  - MEDICATION ERROR [None]
  - MONOPARESIS [None]
